FAERS Safety Report 6656392-6 (Version None)
Quarter: 2010Q1

REPORT INFORMATION
  Report Type: 
  Country: None (occurrence: None)
  Receive Date: 20100329
  Receipt Date: 20100324
  Transmission Date: 20100710
  Serious: Yes (Death, Life-Threatening, Hospitalization, Other)
  Sender: FDA-Public Use
  Company Number: JP-ROCHE-617545

PATIENT
  Sex: Male
  Weight: 75 kg

DRUGS (13)
  1. TOCILIZUMAB [Suspect]
     Indication: CASTLEMAN'S DISEASE
     Route: 041
     Dates: start: 20090204, end: 20090204
  2. TOCILIZUMAB [Suspect]
     Route: 041
     Dates: start: 20090218, end: 20090311
  3. GASPORT [Suspect]
     Indication: PROPHYLAXIS
     Route: 048
     Dates: start: 20090204, end: 20090301
  4. PREDNISOLONE [Suspect]
     Indication: CASTLEMAN'S DISEASE
     Route: 048
     Dates: start: 20090122, end: 20090124
  5. PREDNISOLONE [Suspect]
     Route: 048
     Dates: start: 20090125, end: 20090309
  6. PREDNISOLONE [Suspect]
     Route: 048
     Dates: start: 20090310, end: 20090416
  7. LANSOPRAZOLE [Suspect]
     Indication: PROPHYLAXIS
     Route: 048
     Dates: start: 20090306, end: 20090330
  8. LASIX [Concomitant]
     Dosage: DOSE FORM: PERORAL AGENT
     Route: 048
     Dates: start: 20090202, end: 20090301
  9. ITRIZOLE [Concomitant]
     Dosage: DOSE FORM: PERORAL AGENT
     Route: 048
     Dates: start: 20090203, end: 20090215
  10. VANCOMYCIN [Concomitant]
     Dosage: ROUTE: INTRAVENOUS (NOT OTHERWISE SPECIFIED)
     Route: 040
     Dates: start: 20090217, end: 20090220
  11. TAZOCIN [Concomitant]
     Dosage: ROUTE: INTRAVENOUS (NOT OTHERWISE SPECIFIED)
     Route: 042
     Dates: start: 20090217, end: 20090220
  12. PRODIF [Concomitant]
     Dosage: ROUTE: INTRAVENOUS (NOT OTHERWISE SPECIFIED)
     Route: 042
     Dates: start: 20090217, end: 20090219
  13. PRODIF [Concomitant]
     Route: 042
     Dates: start: 20090219, end: 20090220

REACTIONS (26)
  - ADRENAL ATROPHY [None]
  - ANAEMIA [None]
  - ARTERIOSCLEROSIS [None]
  - ASCITES [None]
  - BILIARY TRACT INFECTION [None]
  - BLOOD POTASSIUM DECREASED [None]
  - BONE MARROW FAILURE [None]
  - CARDIAC FAILURE [None]
  - CASTLEMAN'S DISEASE [None]
  - CONDITION AGGRAVATED [None]
  - ENDOSCOPIC RETROGRADE CHOLANGIOPANCREATOGRAPHY [None]
  - GENERAL PHYSICAL HEALTH DETERIORATION [None]
  - HAEMOSIDEROSIS [None]
  - HEPATIC STEATOSIS [None]
  - HISTIOCYTOSIS HAEMATOPHAGIC [None]
  - INFECTION [None]
  - INSOMNIA [None]
  - MULTI-ORGAN FAILURE [None]
  - MYOCARDIAL INFARCTION [None]
  - OPPORTUNISTIC INFECTION [None]
  - PANCYTOPENIA [None]
  - PLEURAL EFFUSION [None]
  - PNEUMOCYSTIS JIROVECI PNEUMONIA [None]
  - PNEUMONIA BACTERIAL [None]
  - PNEUMONIA CYTOMEGALOVIRAL [None]
  - SEPSIS [None]
